FAERS Safety Report 23973675 (Version 1)
Quarter: 2024Q2

REPORT INFORMATION
  Report Type: Spontaneous
  Country: US (occurrence: None)
  Receive Date: 20240613
  Receipt Date: 20240613
  Transmission Date: 20240716
  Serious: No
  Sender: FDA-Public Use
  Company Number: US-MDD US Operations-MDD202403-000956

PATIENT
  Age: 46 Year
  Sex: Female

DRUGS (1)
  1. APOKYN [Suspect]
     Active Substance: APOMORPHINE HYDROCHLORIDE
     Indication: Dystonia
     Route: 058
     Dates: start: 20240225

REACTIONS (3)
  - Rotator cuff syndrome [Unknown]
  - Insomnia [Unknown]
  - Off label use [Unknown]
